FAERS Safety Report 9562140 (Version 1)
Quarter: 2013Q3

REPORT INFORMATION
  Report Type: Spontaneous
  Country: US (occurrence: US)
  Receive Date: 20130927
  Receipt Date: 20130927
  Transmission Date: 20140515
  Serious: Yes (Other)
  Sender: FDA-Public Use
  Company Number: US-ASTRAZENECA-2013SE70485

PATIENT
  Age: 67 Year
  Sex: Female
  Weight: 86.2 kg

DRUGS (2)
  1. ARIMIDEX [Suspect]
     Indication: BREAST CANCER FEMALE
     Route: 048
     Dates: start: 2009
  2. ARIMIDEX [Suspect]
     Indication: BREAST CANCER FEMALE
     Dosage: GENERIC, 1 MG, DAILY
     Route: 048

REACTIONS (3)
  - Cataract [Not Recovered/Not Resolved]
  - Hot flush [Not Recovered/Not Resolved]
  - Night sweats [Not Recovered/Not Resolved]
